FAERS Safety Report 17504583 (Version 1)
Quarter: 2020Q1

REPORT INFORMATION
  Report Type: Spontaneous
  Country: US (occurrence: US)
  Receive Date: 20200305
  Receipt Date: 20200305
  Transmission Date: 20200409
  Serious: Yes (Other)
  Sender: FDA-Public Use
  Company Number: US-SA-2020SA055694

PATIENT
  Sex: Female

DRUGS (2)
  1. TOUJEO [Suspect]
     Active Substance: INSULIN GLARGINE
     Indication: DIABETES MELLITUS
     Dosage: 22 IU, QD
     Route: 065
  2. TOUJEO [Suspect]
     Active Substance: INSULIN GLARGINE
     Dosage: 26 IU, QD
     Route: 065

REACTIONS (18)
  - Asthenia [Unknown]
  - Sleep disorder [Unknown]
  - Urine abnormality [Unknown]
  - Pain in extremity [Unknown]
  - Blood glucose fluctuation [Unknown]
  - Chills [Unknown]
  - Contusion [Unknown]
  - Diabetes mellitus inadequate control [Not Recovered/Not Resolved]
  - Disorientation [Unknown]
  - Headache [Unknown]
  - Pollakiuria [Unknown]
  - Blood glucose increased [Unknown]
  - Inappropriate schedule of product administration [Unknown]
  - Chromaturia [Unknown]
  - Flushing [Unknown]
  - Fatigue [Unknown]
  - Muscular weakness [Unknown]
  - Myalgia [Unknown]
